FAERS Safety Report 8450916-4 (Version None)
Quarter: 2012Q2

REPORT INFORMATION
  Report Type: 
  Country: None (occurrence: None)
  Receive Date: 20120604
  Receipt Date: 20120522
  Transmission Date: 20120825
  Serious: Yes (Other)
  Sender: FDA-Public Use
  Company Number: 2012032393

PATIENT
  Sex: Male

DRUGS (6)
  1. LOVENOX (ENOXPARAIN SODIUM) [Concomitant]
  2. CEFAZOLIN [Concomitant]
  3. CINRYZE [Suspect]
     Indication: HEREDITARY ANGIOEDEMA
     Dosage: (1000 IU QOD, ??-OCT-2011)
  4. COUMADIN [Concomitant]
  5. BERINERT [Suspect]
     Indication: HEREDITARY ANGIOEDEMA
     Dosage: (??-MAY-2012 INTRAVENOUS (NOT OTHERWISE SPECIFIED))
     Route: 042
  6. INSULIN [Concomitant]

REACTIONS (8)
  - MEDICAL DEVICE COMPLICATION [None]
  - VENOUS THROMBOSIS [None]
  - STAPHYLOCOCCAL INFECTION [None]
  - DEVICE RELATED INFECTION [None]
  - DRUG EFFECT DECREASED [None]
  - OEDEMA PERIPHERAL [None]
  - OFF LABEL USE [None]
  - ABDOMINAL DISTENSION [None]
